FAERS Safety Report 8625026-3 (Version None)
Quarter: 2012Q3

REPORT INFORMATION
  Report Type: 
  Country: None (occurrence: None)
  Receive Date: 20120827
  Receipt Date: 20120814
  Transmission Date: 20120928
  Serious: Yes (Hospitalization, Other)
  Sender: FDA-Public Use
  Company Number: PT-009507513-2011SP045901

PATIENT

DRUGS (5)
  1. GARDASIL [Interacting]
     Dosage: 1 DF
     Route: 030
     Dates: start: 20110119, end: 20110119
  2. GARDASIL [Interacting]
     Dosage: 1 DF
     Route: 030
     Dates: start: 20110404, end: 20110404
  3. IMPLANON [Suspect]
     Indication: CONTRACEPTION
     Dosage: 1 DF, UNK
     Route: 058
     Dates: start: 20110301, end: 20110901
  4. GARDASIL [Interacting]
     Dosage: 1 DF
     Route: 030
     Dates: start: 20110901, end: 20110901
  5. MINIGESTE [Interacting]
     Indication: MENORRHAGIA
     Dosage: 1 DF, QD
     Route: 048
     Dates: start: 20090101, end: 20110817

REACTIONS (4)
  - CEREBRAL VENOUS THROMBOSIS [None]
  - MEDICATION ERROR [None]
  - DRUG INTERACTION [None]
  - GRAND MAL CONVULSION [None]
